FAERS Safety Report 4865708-2 (Version None)
Quarter: 2005Q4

REPORT INFORMATION
  Report Type: 
  Country: None (occurrence: None)
  Receive Date: 20051220
  Receipt Date: 20051205
  Transmission Date: 20060501
  Serious: Yes (Hospitalization, Other)
  Sender: FDA-Public Use
  Company Number: L05-USA-05632-01

PATIENT
  Age: 44 Year
  Sex: Female

DRUGS (2)
  1. CARBAMAZEPINE [Suspect]
     Dosage: 1200 MG ONCE
  2. CARBAMAZEPINE [Suspect]

REACTIONS (3)
  - GRAND MAL CONVULSION [None]
  - HYPONATRAEMIA [None]
  - INCORRECT DOSE ADMINISTERED [None]
